FAERS Safety Report 9831860 (Version 10)
Quarter: 2025Q4

REPORT INFORMATION
  Report Type: Spontaneous
  Country: EU (occurrence: EU)
  Receive Date: 20140121
  Receipt Date: 20251103
  Transmission Date: 20260117
  Serious: Yes (Hospitalization, Other)
  Sender: NOVARTIS
  Company Number: PHHY2013FR120804

PATIENT
  Age: 53 Year
  Sex: Female

DRUGS (45)
  1. CYCLOSPORINE [Suspect]
     Active Substance: CYCLOSPORINE
     Indication: Liver transplant
     Dosage: UNK
     Route: 065
  2. CYCLOSPORINE [Suspect]
     Active Substance: CYCLOSPORINE
     Indication: Immunosuppression
  3. MYCOPHENOLATE MOFETIL [Suspect]
     Active Substance: MYCOPHENOLATE MOFETIL
     Indication: Liver transplant
     Dosage: UNK
     Route: 065
  4. TACROLIMUS [Suspect]
     Active Substance: TACROLIMUS
     Indication: Product used for unknown indication
     Dosage: UNK
     Route: 065
  5. RIBAVIRIN [Suspect]
     Active Substance: RIBAVIRIN
     Indication: Hepatitis C
     Dosage: 600 MG
     Route: 065
  6. RIBAVIRIN [Suspect]
     Active Substance: RIBAVIRIN
     Dosage: UNK
     Route: 065
  7. PEGINTERFERON ALFA-2A [Suspect]
     Active Substance: PEGINTERFERON ALFA-2A
     Indication: Hepatitis C
     Dosage: UNK
     Route: 065
  8. TELAPREVIR [Suspect]
     Active Substance: TELAPREVIR
     Indication: Hepatitis C
     Dosage: 2250 MG, DISCONTINUED AT WEEK 12
     Route: 048
  9. TELAPREVIR [Suspect]
     Active Substance: TELAPREVIR
     Dosage: UNK
     Route: 065
  10. TELAPREVIR [Suspect]
     Active Substance: TELAPREVIR
     Dosage: UNK
     Route: 065
  11. TELAPREVIR [Suspect]
     Active Substance: TELAPREVIR
     Dosage: 2250 MG, DISCONTINUED AT WEEK 12
     Route: 048
  12. VIRAFERON [Suspect]
     Active Substance: INTERFERON ALFA-2B
     Indication: Hepatitis C
     Dosage: 135 UG
     Route: 065
  13. VIRAFERON [Suspect]
     Active Substance: INTERFERON ALFA-2B
     Indication: Product used for unknown indication
     Dosage: UNK
     Route: 065
  14. VIRAFERON [Suspect]
     Active Substance: INTERFERON ALFA-2B
     Dosage: 45 UG
     Route: 065
  15. VIRAFERON [Suspect]
     Active Substance: INTERFERON ALFA-2B
     Dosage: 135 UG
     Route: 065
  16. COPEGUS [Suspect]
     Active Substance: RIBAVIRIN
     Indication: Hepatitis C
     Dosage: 714 MG
     Route: 065
  17. COPEGUS [Suspect]
     Active Substance: RIBAVIRIN
     Dosage: 400 MG
     Route: 065
  18. COPEGUS [Suspect]
     Active Substance: RIBAVIRIN
     Dosage: 600 MG
     Route: 065
  19. TACROLIMUS [Suspect]
     Active Substance: TACROLIMUS
     Indication: Liver transplant
     Dosage: 5 MG
     Route: 065
  20. TACROLIMUS [Suspect]
     Active Substance: TACROLIMUS
     Dosage: 1 MG
     Route: 065
  21. VIRAFERON [Suspect]
     Active Substance: INTERFERON ALFA-2B
     Indication: Hepatitis C
     Dosage: 135 UG
     Route: 065
  22. VIRAFERON [Suspect]
     Active Substance: INTERFERON ALFA-2B
     Dosage: 1.5 UG/KG, 1.5 MICROG/KG/WEEK
     Route: 065
  23. VIRAFERON [Suspect]
     Active Substance: INTERFERON ALFA-2B
     Dosage: 45 UG
     Route: 065
  24. VIRAFERON [Suspect]
     Active Substance: INTERFERON ALFA-2B
     Dosage: 135 UG
     Route: 065
  25. PROGRAF [Suspect]
     Active Substance: TACROLIMUS
     Indication: Immunosuppressant drug therapy
     Dosage: 0.5 MG
     Route: 065
  26. PROGRAF [Suspect]
     Active Substance: TACROLIMUS
     Indication: Liver transplant
     Dosage: 5 MG
     Route: 065
  27. PROGRAF [Suspect]
     Active Substance: TACROLIMUS
     Dosage: 1 MG
     Route: 065
  28. ERYTHROPOIETIN [Suspect]
     Active Substance: ERYTHROPOIETIN
     Indication: Anaemia
     Dosage: UNK
     Route: 065
  29. INTERFERON ALFA-2B [Suspect]
     Active Substance: INTERFERON ALFA-2B
     Indication: Product used for unknown indication
     Dosage: UNK
     Route: 065
  30. TACROLIMUS [Suspect]
     Active Substance: TACROLIMUS
     Indication: Liver transplant
     Dosage: 0.2 MG
     Route: 065
  31. MYCOPHENOLATE MOFETIL [Concomitant]
     Active Substance: MYCOPHENOLATE MOFETIL
     Indication: Product used for unknown indication
     Dosage: UNK
     Route: 065
  32. MYCOPHENOLATE MOFETIL [Concomitant]
     Active Substance: MYCOPHENOLATE MOFETIL
     Dosage: UNK
     Route: 065
  33. TENOFOVIR [Concomitant]
     Active Substance: TENOFOVIR
     Indication: HIV infection
     Dosage: 300 MILLIGRAM DAILY;
     Route: 065
  34. TENOFOVIR [Concomitant]
     Active Substance: TENOFOVIR
     Dosage: 300 MG, UNK
     Route: 065
  35. TENOFOVIR [Concomitant]
     Active Substance: TENOFOVIR
     Dosage: 300 MILLIGRAM DAILY;
     Route: 065
  36. TENOFOVIR [Concomitant]
     Active Substance: TENOFOVIR
     Dosage: 300 MILLIGRAM DAILY;
     Route: 065
  37. Abacavir + lamivudina [Concomitant]
     Indication: Antiretroviral therapy
     Dosage: UNK
     Route: 065
  38. Abacavir + lamivudina [Concomitant]
     Dosage: UNK
     Route: 065
  39. CORTICOSTEROID NOS [Concomitant]
     Active Substance: CORTICOSTEROID NOS
     Indication: Immunosuppression
     Dosage: UNK
     Route: 065
  40. CORTICOSTEROID NOS [Concomitant]
     Active Substance: CORTICOSTEROID NOS
     Dosage: UNK
     Route: 065
  41. ABACAVIR [Concomitant]
     Active Substance: ABACAVIR
     Indication: HIV infection
     Dosage: 600 MG, QD
     Route: 065
  42. DARUNAVIR [Concomitant]
     Active Substance: DARUNAVIR
     Indication: HIV infection
     Dosage: 800 MG
     Route: 065
  43. LAMIVUDINE [Concomitant]
     Active Substance: LAMIVUDINE
     Indication: HIV infection
     Dosage: 300 MG
     Route: 065
  44. RALTEGRAVIR [Concomitant]
     Active Substance: RALTEGRAVIR
     Indication: HIV infection
     Dosage: 800 MG
     Route: 065
  45. RITONAVIR [Concomitant]
     Active Substance: RITONAVIR
     Indication: HIV infection
     Dosage: 100 MG
     Route: 065

REACTIONS (9)
  - Hypertrichosis [Recovered/Resolved]
  - Gingival hypertrophy [Unknown]
  - Thrombocytopenia [Recovered/Resolved]
  - Anaemia [Recovered/Resolved]
  - Neutropenia [Recovered/Resolved]
  - Hepatitis cholestatic [Recovered/Resolved]
  - Hepatitis C [Recovered/Resolved]
  - Drug interaction [Recovered/Resolved]
  - Off label use [Unknown]
